FAERS Safety Report 8458640-9 (Version None)
Quarter: 2012Q2

REPORT INFORMATION
  Report Type: 
  Country: None (occurrence: None)
  Receive Date: 20120622
  Receipt Date: 20120619
  Transmission Date: 20120825
  Serious: Yes (Hospitalization, Other)
  Sender: FDA-Public Use
  Company Number: US-PFIZER INC-2012147837

PATIENT
  Sex: Female
  Weight: 95.692 kg

DRUGS (5)
  1. LYRICA [Suspect]
     Indication: ROTATOR CUFF SYNDROME
  2. FLEXERIL [Concomitant]
     Dosage: UNK
  3. ASPIRIN [Concomitant]
     Dosage: UNK
  4. CELEBREX [Suspect]
     Dosage: 200 MG, 1X/DAY
     Route: 048
  5. LYRICA [Suspect]
     Indication: INTERVERTEBRAL DISC DEGENERATION
     Dosage: 75 MG, 3X/DAY
     Route: 048
     Dates: start: 20070101

REACTIONS (2)
  - LOSS OF CONSCIOUSNESS [None]
  - FEELING ABNORMAL [None]
